FAERS Safety Report 7480846-6 (Version None)
Quarter: 2011Q2

REPORT INFORMATION
  Report Type: 
  Country: None (occurrence: None)
  Receive Date: 20110506
  Receipt Date: 20110421
  Transmission Date: 20111010
  Serious: Yes (Hospitalization)
  Sender: FDA-Public Use
  Company Number: AUR-APL-2010-00320

PATIENT
  Age: 75 Year
  Sex: Male
  Weight: 87 kg

DRUGS (6)
  1. RAMIPRIL [Concomitant]
  2. FALITHROM FILM-COATED TABLET (PHENPROCOUMON) [Concomitant]
     Indication: ATRIAL FIBRILLATION
     Dosage: 3 MG, ORAL
     Route: 048
     Dates: start: 20080901, end: 20081204
  3. SIMVASTATIN [Suspect]
     Indication: HYPERPROTEINAEMIA
     Dosage: 40 MG, ORAL
     Route: 048
     Dates: start: 20080901
  4. ACETYLSALICYLIC ACID SRT [Suspect]
     Indication: CORONARY ARTERY DISEASE
     Dosage: 100 MG, ORAL
     Route: 048
     Dates: start: 20080901
  5. METOPROLOL PROLONGED RELEASE TABLET [Concomitant]
  6. CLOPIDOGREL [Suspect]
     Indication: CORONARY ARTERY DISEASE
     Dosage: 75 MG, ORAL
     Route: 048
     Dates: start: 20080901, end: 20081109

REACTIONS (5)
  - DRUG INTERACTION [None]
  - BLOOD PRESSURE DECREASED [None]
  - GASTRITIS [None]
  - DIARRHOEA [None]
  - OESOPHAGITIS HAEMORRHAGIC [None]
